FAERS Safety Report 12625575 (Version 1)
Quarter: 2016Q3

REPORT INFORMATION
  Report Type: Spontaneous
  Country: BR (occurrence: BR)
  Receive Date: 20160805
  Receipt Date: 20160805
  Transmission Date: 20161109
  Serious: Yes (Other)
  Sender: FDA-Public Use
  Company Number: PHHY2016BR105636

PATIENT
  Age: 54 Year
  Sex: Female

DRUGS (1)
  1. ACICLOVIR SANDOZ [Suspect]
     Active Substance: ACYCLOVIR
     Indication: HERPES VIRUS INFECTION
     Dosage: 800 MG, Q4H
     Route: 048

REACTIONS (9)
  - Palpitations [Unknown]
  - Tremor [Unknown]
  - Agitation [Unknown]
  - Eye swelling [Unknown]
  - Pain [Unknown]
  - Confusional state [Unknown]
  - Abdominal discomfort [Unknown]
  - Coordination abnormal [Unknown]
  - Insomnia [Unknown]
